FAERS Safety Report 4276700-3 (Version None)
Quarter: 2004Q1

REPORT INFORMATION
  Report Type: 
  Country: None (occurrence: None)
  Receive Date: 20040120
  Receipt Date: 20040107
  Transmission Date: 20041129
  Serious: No
  Sender: FDA-Public Use
  Company Number: RENA-10845

PATIENT
  Age: 61 Year
  Sex: Female

DRUGS (1)
  1. RENAGEL [Suspect]
     Indication: HYPERPHOSPHATAEMIA

REACTIONS (3)
  - BREAST MICROCALCIFICATION [None]
  - FAT NECROSIS OF BREAST [None]
  - PAIN [None]
